FAERS Safety Report 7429216-7 (Version None)
Quarter: 2011Q2

REPORT INFORMATION
  Report Type: 
  Country: None (occurrence: None)
  Receive Date: 20110421
  Receipt Date: 20110413
  Transmission Date: 20111010
  Serious: Yes (Hospitalization)
  Sender: FDA-Public Use
  Company Number: FR-SANOFI-AVENTIS-2011SA015109

PATIENT
  Age: 90 Year
  Sex: Male
  Weight: 58 kg

DRUGS (4)
  1. KARDEGIC [Suspect]
     Indication: ANGIOPLASTY
     Route: 065
     Dates: start: 20090904
  2. ROSUVASTATIN [Concomitant]
     Dates: start: 20090904
  3. ZANIDIP [Concomitant]
     Dates: start: 20040721
  4. PLAVIX [Suspect]
     Indication: ANGIOPLASTY
     Route: 048
     Dates: start: 20090904, end: 20100821

REACTIONS (5)
  - RENAL FAILURE [None]
  - GASTROINTESTINAL HAEMORRHAGE [None]
  - MICROCYTIC ANAEMIA [None]
  - ACUTE PULMONARY OEDEMA [None]
  - ATRIAL FIBRILLATION [None]
